FAERS Safety Report 4981065-5 (Version None)
Quarter: 2006Q2

REPORT INFORMATION
  Report Type: 
  Country: None (occurrence: None)
  Receive Date: 20060418
  Receipt Date: 20060403
  Transmission Date: 20061013
  Serious: Yes (Hospitalization)
  Sender: FDA-Public Use
  Company Number: 2006S1002805

PATIENT
  Age: 31 Year
  Sex: Male

DRUGS (2)
  1. CLOZAPINE [Suspect]
     Indication: SCHIZOAFFECTIVE DISORDER
     Dosage: 50 MG; HS; ORAL
     Route: 048
  2. CLOZAPINE [Suspect]
     Indication: SCHIZOAFFECTIVE DISORDER
     Dosage: 100 MG; HS; ORAL
     Route: 048

REACTIONS (4)
  - CONDITION AGGRAVATED [None]
  - NEUTROPHIL COUNT DECREASED [None]
  - SCHIZOAFFECTIVE DISORDER [None]
  - TREATMENT NONCOMPLIANCE [None]
